FAERS Safety Report 14304409 (Version 2)
Quarter: 2017Q4

REPORT INFORMATION
  Report Type: Spontaneous
  Country: FR (occurrence: FR)
  Receive Date: 20171219
  Receipt Date: 20171231
  Transmission Date: 20180321
  Serious: Yes (Death, Congenital Anomaly)
  Sender: FDA-Public Use
  Company Number: FR-TEVA-2017-FR-833288

PATIENT

DRUGS (1)
  1. PREDNISONE. [Suspect]
     Active Substance: PREDNISONE
     Indication: ANTINUCLEAR ANTIBODY POSITIVE
     Dosage: .3 MG/KG DAILY;
     Route: 064

REACTIONS (2)
  - Congenital cytomegalovirus infection [Fatal]
  - Foetal exposure during pregnancy [Unknown]
